FAERS Safety Report 7266574-0 (Version None)
Quarter: 2011Q1

REPORT INFORMATION
  Report Type: 
  Country: None (occurrence: None)
  Receive Date: 20110131
  Receipt Date: 20110120
  Transmission Date: 20110831
  Serious: Yes (Hospitalization)
  Sender: FDA-Public Use
  Company Number: FR-B.I. PHARMACEUTICALS,INC./RIDGEFIELD-2011-FF-00051FF

PATIENT
  Age: 90 Year
  Sex: Female

DRUGS (2)
  1. ALDACTAZINE [Concomitant]
  2. SIFROL [Suspect]
     Indication: RESTLESS LEGS SYNDROME
     Route: 048
     Dates: start: 20101101, end: 20101201

REACTIONS (13)
  - DYSARTHRIA [None]
  - CHOLESTASIS [None]
  - HEADACHE [None]
  - MASTICATION DISORDER [None]
  - HYPONATRAEMIA [None]
  - AGGRESSION [None]
  - INFLAMMATION [None]
  - TEMPORAL ARTERITIS [None]
  - DISINHIBITION [None]
  - AGITATION [None]
  - THROMBOCYTOSIS [None]
  - CONFUSIONAL STATE [None]
  - DYSPHAGIA [None]
